FAERS Safety Report 6030980-2 (Version None)
Quarter: 2008Q4

REPORT INFORMATION
  Report Type: 
  Country: None (occurrence: None)
  Receive Date: 20081222
  Receipt Date: 20081009
  Transmission Date: 20090506
  Serious: No
  Sender: FDA-Public Use
  Company Number: US-WYE-H06345708

PATIENT
  Age: 33 Year
  Sex: Female
  Weight: 60.64 kg

DRUGS (2)
  1. PRISTIQ [Suspect]
     Indication: MAJOR DEPRESSION
     Dosage: 50 MG 1X PER 1 DAY, ORAL
     Dates: start: 20081004, end: 20081001
  2. PRISTIQ [Suspect]
     Indication: MAJOR DEPRESSION
     Dosage: 50 MG 1X PER 1 DAY, ORAL
     Dates: start: 20081001

REACTIONS (1)
  - BLOOD PRESSURE INCREASED [None]
